FAERS Safety Report 23994357 (Version 1)
Quarter: 2024Q2

REPORT INFORMATION
  Report Type: Spontaneous
  Country: RU (occurrence: RU)
  Receive Date: 20240620
  Receipt Date: 20240620
  Transmission Date: 20240716
  Serious: Yes (Other)
  Sender: FDA-Public Use
  Company Number: RU-SA-SAC20240613000508

PATIENT
  Age: 41 Year
  Sex: Male

DRUGS (1)
  1. ISATUXIMAB [Suspect]
     Active Substance: ISATUXIMAB
     Indication: Plasma cell myeloma
     Dosage: UNK, TOTAL OF 18 COURSES
     Route: 065
     Dates: start: 20210906

REACTIONS (5)
  - Hypogammaglobulinaemia [Unknown]
  - Pneumonia [Unknown]
  - Respiratory disorder [Unknown]
  - Respiratory tract infection viral [Unknown]
  - Off label use [Unknown]

NARRATIVE: CASE EVENT DATE: 20210906
